FAERS Safety Report 8862638 (Version 3)
Quarter: 2012Q4

REPORT INFORMATION
  Report Type: 
  Country: US (occurrence: US)
  Receive Date: 20121026
  Receipt Date: 20121226
  Transmission Date: 20130627
  Serious: Yes (Hospitalization, Disabling, Other)
  Sender: FDA-Public Use
  Company Number: US-009507513-1202USA00879

PATIENT

DRUGS (7)
  1. FOSAMAX [Suspect]
     Indication: OSTEOPOROSIS
     Dosage: 10 mg, qd
     Route: 048
     Dates: start: 199703, end: 2006
  2. FOSAMAX [Suspect]
     Dosage: 70 mg, qw
     Route: 048
     Dates: start: 1997, end: 2006
  3. OMEGA-3 MARINE TRIGLYCERIDES [Concomitant]
     Dosage: 1000 mg, qd
     Route: 048
     Dates: start: 1990
  4. CENTRUM SILVER [Concomitant]
     Dosage: UNK, qd
  5. CALCIUM (UNSPECIFIED) [Concomitant]
     Dosage: 1000 mg, UNK
     Route: 048
  6. PREDNISONE [Concomitant]
     Indication: RHEUMATOID ARTHRITIS
     Dosage: 3-5 mg
     Route: 048
  7. MIACALCIN [Concomitant]
     Indication: OSTEOPOROSIS
     Dosage: 1 DF, qd
     Route: 055
     Dates: start: 199703

REACTIONS (40)
  - Femur fracture [Unknown]
  - Intramedullary rod insertion [Unknown]
  - Fall [Unknown]
  - Toe operation [Unknown]
  - Arthritis [Not Recovered/Not Resolved]
  - Meniscus injury [Unknown]
  - Medical device complication [Unknown]
  - Knee operation [Unknown]
  - Medical device complication [Unknown]
  - Toe operation [Unknown]
  - Joint surgery [Unknown]
  - Oesophageal dilation procedure [Unknown]
  - Rheumatoid nodule removal [Unknown]
  - Foot operation [Unknown]
  - Arthrodesis [Unknown]
  - Impaired healing [Unknown]
  - Mole excision [Unknown]
  - Finger deformity [Unknown]
  - Foot deformity [Unknown]
  - Foot operation [Unknown]
  - Synovitis [Unknown]
  - Joint dislocation [Unknown]
  - Osteopenia [Unknown]
  - Fall [Unknown]
  - Rib fracture [Unknown]
  - Weight increased [Unknown]
  - Vision blurred [Unknown]
  - Skin disorder [Unknown]
  - Skin lesion [Unknown]
  - Rib fracture [Unknown]
  - Hypoaesthesia [Unknown]
  - Joint effusion [Unknown]
  - Oedema [Unknown]
  - Oedema peripheral [Unknown]
  - Asthenia [Unknown]
  - Abdominal pain upper [Unknown]
  - Dyspepsia [Unknown]
  - Drug ineffective [Unknown]
  - Dysphagia [Unknown]
  - Musculoskeletal pain [Unknown]
